FAERS Safety Report 5782198-6 (Version None)
Quarter: 2008Q2

REPORT INFORMATION
  Report Type: 
  Country: None (occurrence: None)
  Receive Date: 20080623
  Receipt Date: 20080609
  Transmission Date: 20081010
  Serious: Yes (Other)
  Sender: FDA-Public Use
  Company Number: GR-ROCHE-569696

PATIENT
  Age: 65 Year
  Sex: Female

DRUGS (6)
  1. BONIVA [Suspect]
     Indication: DRUG USE FOR UNKNOWN INDICATION
     Dosage: FORM: F.C. TABS
     Route: 048
     Dates: start: 20070101
  2. TRIATEC PLUS [Concomitant]
  3. TRIATEC PLUS [Concomitant]
  4. LOBIVON [Concomitant]
  5. ONE-ALPHA [Concomitant]
  6. CALCIORAL [Concomitant]

REACTIONS (1)
  - HAEMATOCRIT DECREASED [None]
